FAERS Safety Report 8811622 (Version 1)
Quarter: 2012Q4

REPORT INFORMATION
  Report Type: 
  Country: US (occurrence: US)
  Receive Date: 20120927
  Receipt Date: 20120927
  Transmission Date: 20130627
  Serious: No
  Sender: FDA-Public Use
  Company Number: US-B.I. PHARMACEUTICALS,INC./RIDGEFIELD-2012-BP-23175BP

PATIENT
  Sex: Female

DRUGS (2)
  1. ZANTAC (RANITIDINE HYDROCHLORIDE) [Suspect]
     Route: 048
     Dates: start: 20120920, end: 20120920
  2. ZANTAC (RANITIDINE HYDROCHLORIDE) [Suspect]
     Route: 048

REACTIONS (1)
  - Accidental overdose [Recovered/Resolved]
